FAERS Safety Report 20736884 (Version 4)
Quarter: 2023Q1

REPORT INFORMATION
  Report Type: Spontaneous
  Country: US (occurrence: US)
  Receive Date: 20220421
  Receipt Date: 20230303
  Transmission Date: 20230418
  Serious: No
  Sender: FDA-Public Use
  Company Number: US-BRISTOL-MYERS SQUIBB COMPANY-2022-021630

PATIENT
  Age: 80 Year
  Sex: Female

DRUGS (2)
  1. REVLIMID [Suspect]
     Active Substance: LENALIDOMIDE
     Indication: Plasma cell myeloma in remission
     Dosage: 10 MILLIGRAM, TAKE 1 CAPSULE BY MOUTH EVERYDAY FOR 21 DAYS THEN OFF FOR 7 DAYS THEN REPEAT
     Route: 048
     Dates: start: 20190124
  2. REVLIMID [Suspect]
     Active Substance: LENALIDOMIDE
     Dosage: 10 MILLIGRAM, TAKE 1 CAPSULE BY MOUTH EVERYDAY FOR 21 DAYS THEN OFF FOR 7 DAYS THEN REPEAT
     Route: 048

REACTIONS (1)
  - Diarrhoea [Unknown]
